FAERS Safety Report 10515709 (Version 1)
Quarter: 2014Q4

REPORT INFORMATION
  Report Type: Spontaneous
  Country: US (occurrence: None)
  Receive Date: 20141001
  Receipt Date: 20141001
  Transmission Date: 20150528
  Serious: Yes (Other)
  Sender: FDA-Public Use
  Company Number: 1000069683

PATIENT
  Age: 53 Year
  Sex: Female
  Weight: 52 kg

DRUGS (3)
  1. KLONOPIN [Concomitant]
     Active Substance: CLONAZEPAM
  2. SAPHRIS [Suspect]
     Active Substance: ASENAPINE MALEATE
     Indication: BIPOLAR DISORDER
     Route: 060
     Dates: start: 20130314, end: 201305
  3. DEPAKOTE [Concomitant]
     Active Substance: DIVALPROEX SODIUM

REACTIONS (1)
  - Weight increased [None]

NARRATIVE: CASE EVENT DATE: 201303
